FAERS Safety Report 5170489-1 (Version None)
Quarter: 2006Q4

REPORT INFORMATION
  Report Type: 
  Country: None (occurrence: None)
  Receive Date: 20061205
  Receipt Date: 20061123
  Transmission Date: 20070319
  Serious: Yes (Life-Threatening, Hospitalization)
  Sender: FDA-Public Use
  Company Number: 2006144487

PATIENT
  Age: 75 Year
  Sex: Male
  Weight: 85 kg

DRUGS (6)
  1. PREGABALIN                        (PREGABALIN) [Suspect]
     Dosage: 75 MG, DAILY, ORAL
     Route: 048
     Dates: start: 20060816, end: 20060927
  2. LINEZOLID [Suspect]
     Indication: DEVICE RELATED INFECTION
     Dosage: 1.2 MG
     Dates: start: 20060701, end: 20060927
  3. DIGOXIN [Concomitant]
  4. DOXAZOSIN MESYLATE [Concomitant]
  5. ENALAPRIL MALEATE [Concomitant]
  6. OMEPRAZOLE [Concomitant]

REACTIONS (1)
  - PANCYTOPENIA [None]
